FAERS Safety Report 18378530 (Version 2)
Quarter: 2020Q4

REPORT INFORMATION
  Report Type: Spontaneous
  Country: US (occurrence: US)
  Receive Date: 20201013
  Receipt Date: 20201015
  Transmission Date: 20210114
  Serious: No
  Sender: FDA-Public Use
  Company Number: US-BAYER-2020-215000

PATIENT
  Sex: Female

DRUGS (3)
  1. MILK OF MAGNESIA [Suspect]
     Active Substance: MAGNESIUM HYDROXIDE
     Indication: GASTROINTESTINAL MOTILITY DISORDER
     Dosage: UNK UNK, TID
     Route: 065
  2. MILK OF MAGNESIA [Suspect]
     Active Substance: MAGNESIUM HYDROXIDE
     Indication: GASTROINTESTINAL MOTILITY DISORDER
     Dosage: UNK UNK, HS
     Route: 065
  3. MIRALAX [Suspect]
     Active Substance: POLYETHYLENE GLYCOL 3350
     Indication: GASTROINTESTINAL MOTILITY DISORDER
     Dosage: FILL THE CAP OVER THE WHITE SECTION, TID
     Route: 048
     Dates: start: 2005

REACTIONS (2)
  - Product use in unapproved indication [Unknown]
  - Off label use [Unknown]
